FAERS Safety Report 12517531 (Version 8)
Quarter: 2018Q3

REPORT INFORMATION
  Report Type: Spontaneous
  Country: US (occurrence: US)
  Receive Date: 20160630
  Receipt Date: 20180712
  Transmission Date: 20181010
  Serious: No
  Sender: FDA-Public Use
  Company Number: US-ACTELION-A-US2016-136297

PATIENT
  Age: 64 Year
  Sex: Female
  Weight: 89.8 kg

DRUGS (8)
  1. UPTRAVI [Suspect]
     Active Substance: SELEXIPAG
     Indication: PULMONARY HYPERTENSION
     Dosage: 200 MCG, BID
     Route: 048
     Dates: start: 20160502, end: 20160515
  2. TYVASO [Concomitant]
     Active Substance: TREPROSTINIL
  3. UPTRAVI [Suspect]
     Active Substance: SELEXIPAG
     Dosage: 400 MCG, UNK
     Route: 048
  4. UPTRAVI [Suspect]
     Active Substance: SELEXIPAG
     Dosage: 200 MCG, QD
     Route: 048
     Dates: start: 20160516
  5. NORVASC [Concomitant]
     Active Substance: AMLODIPINE BESYLATE
  6. SILDENAFIL. [Concomitant]
     Active Substance: SILDENAFIL
  7. ADCIRCA [Concomitant]
     Active Substance: TADALAFIL
  8. AMBRISENTAN [Suspect]
     Active Substance: AMBRISENTAN
     Indication: PRODUCT USED FOR UNKNOWN INDICATION
     Dosage: 5 MG, QD
     Route: 048
     Dates: start: 20150508

REACTIONS (13)
  - Bedridden [Unknown]
  - Pain in extremity [Unknown]
  - Decreased appetite [Unknown]
  - Pneumonia [Unknown]
  - Musculoskeletal pain [Unknown]
  - Diarrhoea [Unknown]
  - Arthralgia [Unknown]
  - Chest discomfort [Unknown]
  - Headache [Unknown]
  - Dizziness [Unknown]
  - Nausea [Recovering/Resolving]
  - Fatigue [Unknown]
  - Dyspnoea [Unknown]

NARRATIVE: CASE EVENT DATE: 201609
